FAERS Safety Report 9324313 (Version 2)
Quarter: 2013Q2

REPORT INFORMATION
  Report Type: Spontaneous
  Country: US (occurrence: US)
  Receive Date: 20130603
  Receipt Date: 20130611
  Transmission Date: 20140414
  Serious: Yes (Hospitalization, Other)
  Sender: FDA-Public Use
  Company Number: US-BAXTER-2013BAX019939

PATIENT
  Age: 73 Year
  Sex: Male

DRUGS (2)
  1. DIANEAL LOW CALCIUM [Suspect]
     Indication: PERITONEAL DIALYSIS
     Route: 033
  2. NAPROXEN [Suspect]
     Indication: ARTHRALGIA
     Route: 065

REACTIONS (2)
  - Ulcer haemorrhage [Recovering/Resolving]
  - Arthritis [Recovering/Resolving]
